FAERS Safety Report 5003841-5 (Version None)
Quarter: 2006Q2

REPORT INFORMATION
  Report Type: 
  Country: None (occurrence: None)
  Receive Date: 20060515
  Receipt Date: 20060428
  Transmission Date: 20061013
  Serious: Yes (Hospitalization)
  Sender: FDA-Public Use
  Company Number: 200610423BFR

PATIENT
  Age: 20 Year
  Sex: Male

DRUGS (6)
  1. CIPROFLOXACIN HCL [Suspect]
     Indication: PSEUDOMONAS INFECTION
     Dates: start: 20000101
  2. OMEPRAZOLE [Concomitant]
  3. NUBAIN [Concomitant]
  4. OFLOCET [Concomitant]
  5. OXACILLIN [Concomitant]
  6. TARDYFERTRON                 (FERROUS SULFATE) [Suspect]
     Indication: ANAEMIA

REACTIONS (4)
  - DRUG EFFECT DECREASED [None]
  - DRUG INTERACTION [None]
  - LEG AMPUTATION [None]
  - OSTEITIS [None]
